FAERS Safety Report 13026409 (Version 1)
Quarter: 2016Q4

REPORT INFORMATION
  Report Type: Spontaneous
  Country: GB (occurrence: GB)
  Receive Date: 20161214
  Receipt Date: 20161214
  Transmission Date: 20170207
  Serious: Yes (Other)
  Sender: FDA-Public Use
  Company Number: GB-TEVA-717881ACC

PATIENT
  Age: 45 Year
  Sex: Female
  Weight: 104 kg

DRUGS (12)
  1. SITAGLIPTIN [Concomitant]
     Active Substance: SITAGLIPTIN
     Dosage: 2 DOSAGE FORMS DAILY;
     Dates: start: 20160531
  2. METFORMIN [Concomitant]
     Active Substance: METFORMIN HYDROCHLORIDE
     Dosage: 3 DOSAGE FORMS DAILY;
     Dates: start: 20160531
  3. AMOXICILLIN. [Suspect]
     Active Substance: AMOXICILLIN
     Dates: start: 20161110
  4. PARACETAMOL [Concomitant]
     Active Substance: ACETAMINOPHEN
     Dosage: TAKE 1 OR 2, 4 TIMES A DAY
     Dates: start: 20150519
  5. PIROXICAM. [Concomitant]
     Active Substance: PIROXICAM
     Dosage: 3 DOSAGE FORMS DAILY; APPLY
     Dates: start: 20140822
  6. ATORVASTATIN [Concomitant]
     Active Substance: ATORVASTATIN
     Indication: BLOOD CHOLESTEROL INCREASED
     Dosage: 1 DOSAGE FORMS DAILY;
     Dates: start: 20160531
  7. CHLORAMPHENICOL [Concomitant]
     Active Substance: CHLORAMPHENICOL
     Dosage: 4 GTT DAILY;
     Dates: start: 20161110, end: 20161111
  8. HYDROXOCOBALAMIN [Concomitant]
     Active Substance: HYDROXOCOBALAMIN
     Dosage: AS DIRECTED
     Dates: start: 20161012, end: 20161013
  9. DOXYCYCLINE. [Concomitant]
     Active Substance: DOXYCYCLINE
     Dosage: TWO NOW THEN ONE DAILY
     Dates: start: 20161110, end: 20161117
  10. NAPROXEN. [Concomitant]
     Active Substance: NAPROXEN
     Dosage: 2 DOSAGE FORMS DAILY;
     Dates: start: 20161110
  11. IBUPROFEN. [Concomitant]
     Active Substance: IBUPROFEN
     Dosage: 3 DOSAGE FORMS DAILY; APPLY
     Route: 061
     Dates: start: 20160301
  12. OMEPRAZOLE. [Concomitant]
     Active Substance: OMEPRAZOLE
     Dosage: 1 DOSAGE FORMS DAILY;
     Dates: start: 20161110

REACTIONS (2)
  - Diarrhoea [Recovered/Resolved]
  - Gastrointestinal disorder [Unknown]

NARRATIVE: CASE EVENT DATE: 20161122
